FAERS Safety Report 12257565 (Version 1)
Quarter: 2016Q2

REPORT INFORMATION
  Report Type: Spontaneous
  Country: US (occurrence: US)
  Receive Date: 20160412
  Receipt Date: 20160412
  Transmission Date: 20160815
  Serious: Yes (Hospitalization, Other)
  Sender: FDA-Public Use
  Company Number: US-ENDO PHARMACEUTICALS INC.-2016-002468

PATIENT
  Age: 58 Year
  Sex: Male
  Weight: 63.11 kg

DRUGS (6)
  1. XIAFLEX [Suspect]
     Active Substance: COLLAGENASE CLOSTRIDIUM HISTOLYTICUM
     Dosage: 5TH CYCLE, FIRST INJECTION
     Route: 026
     Dates: start: 20160328, end: 20160328
  2. XIAFLEX [Suspect]
     Active Substance: COLLAGENASE CLOSTRIDIUM HISTOLYTICUM
     Dosage: 4TH CYCLE OF 2 INJECTIONS
     Route: 026
     Dates: start: 2015, end: 2015
  3. XIAFLEX [Suspect]
     Active Substance: COLLAGENASE CLOSTRIDIUM HISTOLYTICUM
     Dosage: 2ND CYCLE OF 2 INJECTIONS
     Route: 026
     Dates: start: 2015, end: 2015
  4. XIAFLEX [Suspect]
     Active Substance: COLLAGENASE CLOSTRIDIUM HISTOLYTICUM
     Dosage: 1ST CYCLE OF 2 INJECTIONS
     Route: 026
     Dates: start: 2014, end: 2014
  5. XIAFLEX [Suspect]
     Active Substance: COLLAGENASE CLOSTRIDIUM HISTOLYTICUM
     Indication: PEYRONIE^S DISEASE
     Dosage: 5TH CYCLE, 2ND INJECTION
     Route: 026
     Dates: start: 20160331, end: 20160331
  6. XIAFLEX [Suspect]
     Active Substance: COLLAGENASE CLOSTRIDIUM HISTOLYTICUM
     Dosage: 3RD CYCLE OF 2 INJECTIONS
     Route: 026
     Dates: start: 2015, end: 2015

REACTIONS (8)
  - Scrotal swelling [Recovering/Resolving]
  - Intentional product use issue [Unknown]
  - Local swelling [Recovering/Resolving]
  - Penile swelling [Recovering/Resolving]
  - Tooth infection [Unknown]
  - Bacterial infection [Unknown]
  - Injection site discomfort [Unknown]
  - Drug ineffective [Unknown]

NARRATIVE: CASE EVENT DATE: 2016
